FAERS Safety Report 10866384 (Version 1)
Quarter: 2015Q1

REPORT INFORMATION
  Report Type: Spontaneous
  Country: US (occurrence: None)
  Receive Date: 20150219
  Receipt Date: 20150219
  Transmission Date: 20150721
  Serious: Yes (Hospitalization)
  Sender: FDA-Public Use
  Company Number: None

PATIENT
  Age: 61 Year
  Sex: Male
  Weight: 66.3 kg

DRUGS (1)
  1. CISPLATIN. [Suspect]
     Active Substance: CISPLATIN
     Dates: end: 20140318

REACTIONS (4)
  - Stridor [None]
  - Tongue ulceration [None]
  - Laryngeal oedema [None]
  - Obstructive airways disorder [None]

NARRATIVE: CASE EVENT DATE: 20140711
